FAERS Safety Report 22011373 (Version 1)
Quarter: 2023Q1

REPORT INFORMATION
  Report Type: Spontaneous
  Country: FR (occurrence: FR)
  Receive Date: 20230220
  Receipt Date: 20230220
  Transmission Date: 20230418
  Serious: Yes (Other)
  Sender: FDA-Public Use
  Company Number: FR-BAYER-2023P008576

PATIENT
  Age: 84 Year
  Sex: Female

DRUGS (3)
  1. EYLEA [Suspect]
     Active Substance: AFLIBERCEPT
     Indication: Neovascular age-related macular degeneration
     Dosage: UNK, RIGHT EYE, SOLUTION FOR INJECTION IN PRE-FILLED SYRINGE, 40MG/ML
     Route: 031
     Dates: start: 20200105
  2. EYLEA [Suspect]
     Active Substance: AFLIBERCEPT
     Dosage: UNK, LEFT EYE, SOLUTION FOR INJECTION IN PRE-FILLED SYRINGE, 40MG/ML
     Dates: start: 20200105
  3. VEGF/VEGFR (VASCULAR ENDOTHELIAL GROWTH FACTOR) INHIBITORS [Concomitant]
     Indication: Neovascular age-related macular degeneration
     Dosage: UNK
     Dates: start: 20160519, end: 20230105

REACTIONS (6)
  - Retinal haemorrhage [Unknown]
  - Endophthalmitis [Recovered/Resolved with Sequelae]
  - Vitritis [Unknown]
  - Visual impairment [Unknown]
  - Ocular hyperaemia [Unknown]
  - Eye pain [Unknown]

NARRATIVE: CASE EVENT DATE: 20230109
